FAERS Safety Report 13762907 (Version 3)
Quarter: 2018Q4

REPORT INFORMATION
  Report Type: Report from Study
  Country: US (occurrence: US)
  Receive Date: 20170718
  Receipt Date: 20181220
  Transmission Date: 20190204
  Serious: Yes (Hospitalization)
  Sender: FDA-Public Use
  Company Number: US-BIOGEN-2017BI00431092

PATIENT
  Age: 61 Year
  Sex: Female

DRUGS (2)
  1. AMPYRA [Suspect]
     Active Substance: DALFAMPRIDINE
     Indication: GAIT DISTURBANCE
     Route: 065
  2. TECFIDERA [Suspect]
     Active Substance: DIMETHYL FUMARATE
     Indication: MULTIPLE SCLEROSIS
     Route: 048
     Dates: start: 20150115

REACTIONS (5)
  - Musculoskeletal disorder [Recovered/Resolved]
  - Spinal compression fracture [Recovered/Resolved]
  - Urinary tract infection [Unknown]
  - Multiple sclerosis relapse [Unknown]
  - Buttock injury [Recovered/Resolved]

NARRATIVE: CASE EVENT DATE: 2015
